FAERS Safety Report 18943656 (Version 1)
Quarter: 2021Q1

REPORT INFORMATION
  Report Type: Spontaneous
  Country: US (occurrence: US)
  Receive Date: 20210226
  Receipt Date: 20210226
  Transmission Date: 20210420
  Serious: No
  Sender: FDA-Public Use
  Company Number: US-ALLERGAN-2048244US

PATIENT
  Sex: Female

DRUGS (6)
  1. OXCARBAZEPINE. [Concomitant]
     Active Substance: OXCARBAZEPINE
  2. OTHER UNSPECIFIED NERVE MEDICATIONS [Concomitant]
     Indication: NEURALGIA
  3. HYDROCODONE [Concomitant]
     Active Substance: HYDROCODONE
     Indication: NEURALGIA
  4. ANTIDEPRESSANT MEDICATIONS [Concomitant]
     Active Substance: UNSPECIFIED INGREDIENT
     Indication: DEPRESSION
  5. SAVELLA [Suspect]
     Active Substance: MILNACIPRAN HYDROCHLORIDE
     Indication: PRODUCT USED FOR UNKNOWN INDICATION
  6. IV STEROIDS [Concomitant]
     Active Substance: UNSPECIFIED INGREDIENT
     Indication: NEURALGIA
     Route: 042

REACTIONS (1)
  - Dizziness [Recovered/Resolved]
